FAERS Safety Report 12544433 (Version 1)
Quarter: 2016Q3

REPORT INFORMATION
  Report Type: Spontaneous
  Country: US (occurrence: None)
  Receive Date: 20160708
  Receipt Date: 20160708
  Transmission Date: 20161109
  Serious: No
  Sender: FDA-Public Use
  Company Number: None

PATIENT
  Age: 70 Year
  Sex: Female

DRUGS (1)
  1. COSENTYX [Suspect]
     Active Substance: SECUKINUMAB
     Indication: PSORIASIS
     Dosage: 300MG (2SYRINGES) ONCE EVERY 4 WEEKS, SUBCUTANEOUSLY
     Route: 058
     Dates: start: 20151203

REACTIONS (1)
  - Product quality issue [None]

NARRATIVE: CASE EVENT DATE: 20160629
